FAERS Safety Report 11894763 (Version 1)
Quarter: 2016Q1

REPORT INFORMATION
  Report Type: Spontaneous
  Country: US (occurrence: US)
  Receive Date: 20160107
  Receipt Date: 20160107
  Transmission Date: 20160526
  Serious: No
  Sender: FDA-Public Use
  Company Number: US-BAYER-2016-002967

PATIENT
  Age: 80 Year
  Sex: Female
  Weight: 80.73 kg

DRUGS (5)
  1. CLARITIN [Suspect]
     Active Substance: LORATADINE
     Indication: SEASONAL ALLERGY
     Dosage: 1 DF, UNK
     Route: 048
     Dates: start: 20160105
  2. CLARITIN [Suspect]
     Active Substance: LORATADINE
     Indication: RHINORRHOEA
  3. VITAMIN B12 [Concomitant]
     Active Substance: CYANOCOBALAMIN
     Dosage: UNK
  4. CLARITIN [Suspect]
     Active Substance: LORATADINE
     Indication: SNEEZING
     Dosage: 1 DF, UNK
     Route: 048
     Dates: start: 20160106
  5. VITAMIN D [Concomitant]
     Active Substance: CHOLECALCIFEROL
     Dosage: UNK

REACTIONS (3)
  - Drug ineffective [Unknown]
  - Drug ineffective [Unknown]
  - Product use issue [Unknown]

NARRATIVE: CASE EVENT DATE: 20160105
